FAERS Safety Report 14843752 (Version 1)
Quarter: 2018Q2

REPORT INFORMATION
  Report Type: Report from Study
  Country: US (occurrence: US)
  Receive Date: 20180503
  Receipt Date: 20180503
  Transmission Date: 20180711
  Serious: Yes (Hospitalization)
  Sender: FDA-Public Use
  Company Number: US-BAYER-2018-057926

PATIENT
  Age: 89 Year
  Sex: Male

DRUGS (1)
  1. ADEMPAS [Suspect]
     Active Substance: RIOCIGUAT
     Dosage: UNK

REACTIONS (4)
  - Hospitalisation [Not Recovered/Not Resolved]
  - Accident [None]
  - Housebound [None]
  - Back injury [None]
